FAERS Safety Report 17672329 (Version 1)
Quarter: 2020Q2

REPORT INFORMATION
  Report Type: Spontaneous
  Country: ES (occurrence: ES)
  Receive Date: 20200415
  Receipt Date: 20200415
  Transmission Date: 20200713
  Serious: Yes (Life-Threatening, Hospitalization)
  Sender: FDA-Public Use
  Company Number: ES-TEVA-2020-ES-1223392

PATIENT
  Age: 54 Year
  Sex: Female

DRUGS (8)
  1. ZONISAMIDA (7004A) [Interacting]
     Active Substance: ZONISAMIDE
     Indication: SUICIDE ATTEMPT
     Dosage: 600 MG
     Route: 048
     Dates: start: 20200303, end: 20200303
  2. DIAZEPAM (730A) [Interacting]
     Active Substance: DIAZEPAM
     Indication: SUICIDE ATTEMPT
     Dosage: 60 MG
     Route: 048
     Dates: start: 20200303, end: 20200303
  3. BUPROPION HIDROCLORURO (1131CH) [Suspect]
     Active Substance: BUPROPION HYDROCHLORIDE
     Indication: SUICIDE ATTEMPT
     Dosage: 1800 MG
     Route: 048
     Dates: start: 20200303, end: 20200303
  4. CLOTIAPINA (678A) [Interacting]
     Active Substance: CLOTHIAPINE
     Indication: SUICIDE ATTEMPT
     Dosage: 240 MG
     Route: 048
     Dates: start: 20200303, end: 20200303
  5. CLONAZEPAM (635A) [Interacting]
     Active Substance: CLONAZEPAM
     Indication: SUICIDE ATTEMPT
     Dosage: 48 MG
     Route: 048
     Dates: start: 20200303, end: 20200303
  6. GABAPENTINA (2641A) [Interacting]
     Active Substance: GABAPENTIN
     Indication: SUICIDE ATTEMPT
     Dosage: 4050 MG
     Route: 048
     Dates: start: 20200303, end: 20200303
  7. QUETIAPINA (1136A) [Interacting]
     Active Substance: QUETIAPINE
     Indication: SUICIDE ATTEMPT
     Dosage: 7200 MG
     Route: 048
     Dates: start: 20200303, end: 20200303
  8. PROPRANOLOL (2218A) [Interacting]
     Active Substance: PROPRANOLOL HYDROCHLORIDE
     Indication: SUICIDE ATTEMPT
     Dosage: 720 MG
     Route: 048
     Dates: start: 20200303, end: 20200303

REACTIONS (2)
  - Coma [Recovered/Resolved]
  - Drug interaction [Unknown]

NARRATIVE: CASE EVENT DATE: 20200303
